FAERS Safety Report 9162287 (Version 1)
Quarter: 2013Q1

REPORT INFORMATION
  Report Type: Spontaneous
  Country: IT (occurrence: IT)
  Receive Date: 20130314
  Receipt Date: 20130314
  Transmission Date: 20140127
  Serious: Yes (Hospitalization)
  Sender: FDA-Public Use
  Company Number: IT-MYLANLABS-2013S1004782

PATIENT
  Age: 78 Year
  Sex: Male

DRUGS (3)
  1. LEVOFLOXACIN [Suspect]
     Indication: OROPHARYNGEAL PAIN
     Route: 048
     Dates: start: 20130129, end: 20130202
  2. CARDURA [Concomitant]
     Indication: PRODUCT USED FOR UNKNOWN INDICATION
  3. TAREG [Concomitant]
     Indication: PRODUCT USED FOR UNKNOWN INDICATION

REACTIONS (5)
  - Leukopenia [Recovered/Resolved]
  - Neutropenia [Recovered/Resolved]
  - Lymphocytosis [Recovered/Resolved]
  - Monocytosis [Recovered/Resolved]
  - Blast cells [Recovered/Resolved]
